FAERS Safety Report 18146500 (Version 7)
Quarter: 2021Q3

REPORT INFORMATION
  Report Type: Report from Study
  Country: US (occurrence: US)
  Receive Date: 20200813
  Receipt Date: 20210712
  Transmission Date: 20211014
  Serious: No
  Sender: FDA-Public Use
  Company Number: NVSC2020US224410

PATIENT
  Age: 53 Year
  Sex: Female

DRUGS (1)
  1. ENTRESTO [Suspect]
     Active Substance: SACUBITRIL\VALSARTAN
     Indication: CARDIAC FAILURE
     Dosage: 1 DF, BID (24/ 26 MG)
     Route: 048
     Dates: start: 201910

REACTIONS (13)
  - Skin discolouration [Unknown]
  - Weight increased [Unknown]
  - Arthritis [Unknown]
  - Hypersensitivity [Unknown]
  - Fatigue [Unknown]
  - Hypotension [Not Recovered/Not Resolved]
  - Peripheral swelling [Unknown]
  - Ejection fraction abnormal [Unknown]
  - Insomnia [Unknown]
  - Weight fluctuation [Not Recovered/Not Resolved]
  - Intentional product misuse [Unknown]
  - Dyspnoea [Unknown]
  - Cough [Not Recovered/Not Resolved]

NARRATIVE: CASE EVENT DATE: 20210602
